FAERS Safety Report 18487967 (Version 1)
Quarter: 2020Q4

REPORT INFORMATION
  Report Type: Spontaneous
  Country: US (occurrence: US)
  Receive Date: 20201110
  Receipt Date: 20201110
  Transmission Date: 20210114
  Serious: No
  Sender: FDA-Public Use
  Company Number: US-FOUNDATIONCONSUMERHC-2020-US-018248

PATIENT
  Age: 25 Year
  Sex: Female
  Weight: 72.58 kg

DRUGS (3)
  1. UNSPECIFIED HEADACHE MEDICATION [Concomitant]
  2. PLAN B ONE-STEP [Suspect]
     Active Substance: LEVONORGESTREL
     Indication: POST COITAL CONTRACEPTION
     Dosage: 1.5 MG X 1 DOSE
     Route: 065
     Dates: start: 20200824, end: 20200824
  3. GUMMY VITAMINS [Concomitant]

REACTIONS (1)
  - Vaginal haemorrhage [Not Recovered/Not Resolved]

NARRATIVE: CASE EVENT DATE: 20200831
